FAERS Safety Report 9986607 (Version 1)
Quarter: 2014Q1

REPORT INFORMATION
  Report Type: Report from Study
  Country: US (occurrence: US)
  Receive Date: 20140307
  Receipt Date: 20140307
  Transmission Date: 20141002
  Serious: No
  Sender: FDA-Public Use
  Company Number: US-ABBVIE-13P-163-1082147-00

PATIENT
  Age: 39 Year
  Sex: Female

DRUGS (6)
  1. HUMIRA [Suspect]
     Indication: PSORIATIC ARTHROPATHY
  2. AMBIEN [Concomitant]
     Indication: INSOMNIA
     Route: 048
  3. METOPROLOL [Concomitant]
     Indication: BLOOD PRESSURE
     Route: 048
  4. HYDROCODONE [Concomitant]
     Indication: PAIN
     Route: 048
  5. ALBUTEROL [Concomitant]
     Indication: BRONCHITIS CHRONIC
  6. TRIAMTERENE [Concomitant]
     Indication: FLUID RETENTION
     Route: 048

REACTIONS (2)
  - Arthralgia [Not Recovered/Not Resolved]
  - Injection site pain [Not Recovered/Not Resolved]
